FAERS Safety Report 12622804 (Version 2)
Quarter: 2016Q3

REPORT INFORMATION
  Report Type: Spontaneous
  Country: US (occurrence: US)
  Receive Date: 20160804
  Receipt Date: 20160912
  Transmission Date: 20161109
  Serious: Yes (Hospitalization, Other)
  Sender: FDA-Public Use
  Company Number: US-009507513-1112USA01770

PATIENT
  Sex: Male

DRUGS (12)
  1. FOSAMAX [Suspect]
     Active Substance: ALENDRONATE SODIUM
     Indication: OSTEOPOROSIS
     Dosage: 70 MG, QW
     Route: 048
     Dates: start: 20061012, end: 20071021
  2. PRILOSEC [Concomitant]
     Active Substance: OMEPRAZOLE MAGNESIUM
     Indication: GASTROOESOPHAGEAL REFLUX DISEASE
     Dosage: UNK, UNKNOWN
     Route: 048
     Dates: start: 1995, end: 2006
  3. FOSAMAX [Suspect]
     Active Substance: ALENDRONATE SODIUM
     Indication: OSTEONECROSIS
     Dosage: UNK, UNKNOWN
     Route: 048
     Dates: start: 199911
  4. FOSAMAX [Suspect]
     Active Substance: ALENDRONATE SODIUM
     Dosage: 70 MG, QW
     Route: 048
     Dates: start: 20090821, end: 2009
  5. ASTELIN (AZELASTINE HYDROCHLORIDE) [Concomitant]
     Active Substance: AZELASTINE HYDROCHLORIDE
     Indication: SEASONAL ALLERGY
     Dosage: UNK, UNKNOWN
     Route: 065
     Dates: start: 1995
  6. BACLOFEN. [Concomitant]
     Active Substance: BACLOFEN
     Indication: ARTHRALGIA
  7. ALENDRONATE SODIUM. [Suspect]
     Active Substance: ALENDRONATE SODIUM
     Indication: OSTEOPOROSIS
  8. BACLOFEN. [Concomitant]
     Active Substance: BACLOFEN
     Indication: BACK PAIN
     Dosage: UNK, UNKNOWN
     Route: 065
     Dates: start: 1995
  9. FOSAMAX [Suspect]
     Active Substance: ALENDRONATE SODIUM
     Indication: OSTEONECROSIS
     Dosage: 70 MG, UNK
     Route: 048
     Dates: start: 20030201, end: 20060419
  10. ALENDRONATE SODIUM. [Suspect]
     Active Substance: ALENDRONATE SODIUM
     Indication: OSTEONECROSIS
     Dosage: 70 MG, QW
     Route: 048
     Dates: start: 20080628, end: 2008
  11. ALENDRONATE SODIUM. [Suspect]
     Active Substance: ALENDRONATE SODIUM
     Indication: OSTEONECROSIS
  12. OXYCONTIN [Concomitant]
     Active Substance: OXYCODONE HYDROCHLORIDE
     Indication: PAIN
     Dosage: UNK, UNKNOWN
     Route: 065
     Dates: start: 1995

REACTIONS (45)
  - Pain in extremity [Unknown]
  - Groin pain [Unknown]
  - Amnesia [Unknown]
  - Hypoxia [Unknown]
  - Dyslipidaemia [Unknown]
  - Hyperlipidaemia [Unknown]
  - Bone disorder [Unknown]
  - Lower urinary tract symptoms [Unknown]
  - Osteonecrosis [Unknown]
  - Sinus disorder [Unknown]
  - Sleep apnoea syndrome [Unknown]
  - Vitamin D deficiency [Unknown]
  - Dysphonia [Unknown]
  - Tremor [Unknown]
  - Libido decreased [Unknown]
  - Diabetic complication [Unknown]
  - Nausea [Unknown]
  - Anxiety [Not Recovered/Not Resolved]
  - Bone metabolism disorder [Not Recovered/Not Resolved]
  - Hypogonadism [Unknown]
  - Constipation [Unknown]
  - Essential hypertension [Unknown]
  - Polyarthritis [Unknown]
  - Traumatic fracture [Unknown]
  - Rib fracture [Unknown]
  - Rheumatic disorder [Unknown]
  - Benign prostatic hyperplasia [Unknown]
  - Fall [Unknown]
  - Pain in jaw [Unknown]
  - Rhinitis allergic [Unknown]
  - Fatigue [Unknown]
  - Asthma [Unknown]
  - Femur fracture [Recovered/Resolved with Sequelae]
  - Arthralgia [Unknown]
  - Hip arthroplasty [Unknown]
  - Type 2 diabetes mellitus [Unknown]
  - Nasal disorder [Unknown]
  - Bronchitis [Unknown]
  - Depression [Not Recovered/Not Resolved]
  - Prostatic obstruction [Unknown]
  - Arthropathy [Unknown]
  - Low turnover osteopathy [Unknown]
  - Chronic obstructive pulmonary disease [Unknown]
  - Ankle fracture [Unknown]
  - Androgen deficiency [Unknown]

NARRATIVE: CASE EVENT DATE: 2000
